FAERS Safety Report 7138540-7 (Version None)
Quarter: 2010Q4

REPORT INFORMATION
  Report Type: 
  Country: None (occurrence: None)
  Receive Date: 20101206
  Receipt Date: 20101122
  Transmission Date: 20110411
  Serious: Yes (Hospitalization)
  Sender: FDA-Public Use
  Company Number: FR-ELI_LILLY_AND_COMPANY-FR201011005674

PATIENT
  Sex: Female

DRUGS (6)
  1. GEMZAR [Suspect]
     Indication: BREAST CANCER
     Dosage: 1250 MG/M2, 21DAY CYCLE ON DAY1 AND 8
     Route: 042
     Dates: start: 20100311
  2. SOLUPRED [Concomitant]
     Route: 048
     Dates: start: 20100801
  3. XANAX [Concomitant]
     Dosage: 0.25 MG, DAILY (1/D)
     Dates: start: 20100311
  4. ZOLPIDEM [Concomitant]
     Dosage: UNK, 1TAB/DAY
     Route: 048
     Dates: start: 20100311
  5. SYMBICORT [Concomitant]
     Dosage: UNK, AS NEEDED
     Route: 048
  6. CARBOPLATIN [Concomitant]
     Indication: BREAST CANCER

REACTIONS (1)
  - CYTOLYTIC HEPATITIS [None]
